FAERS Safety Report 9264207 (Version 5)
Quarter: 2014Q2

REPORT INFORMATION
  Report Type: Spontaneous
  Country: US (occurrence: US)
  Receive Date: 20130430
  Receipt Date: 20140624
  Transmission Date: 20141212
  Serious: Yes (Other)
  Sender: FDA-Public Use
  Company Number: US-ASTRAZENECA-2012SE56091

PATIENT
  Age: 39 Year
  Sex: Female
  Weight: 90.7 kg

DRUGS (8)
  1. NEXIUM [Suspect]
     Indication: GASTROOESOPHAGEAL REFLUX DISEASE
     Route: 048
     Dates: start: 2011, end: 20140611
  2. NEXIUM [Suspect]
     Indication: GASTROOESOPHAGEAL REFLUX DISEASE
     Route: 048
  3. MAALOX [Concomitant]
     Dosage: AS NEEDED
  4. TUMS [Concomitant]
     Dosage: AS NEEDED
  5. PEPTO BISMOL [Concomitant]
     Dosage: AS NEEDED
  6. IBUPROFEN [Concomitant]
     Indication: HEADACHE
     Dosage: 200 MG 2 TO 3 TABS AS NEEDED
  7. IBUPROFEN [Concomitant]
     Indication: MYALGIA
     Dosage: 200 MG 2 TO 3 TABS AS NEEDED
  8. XANAX [Concomitant]
     Indication: ANXIETY
     Dates: start: 2010

REACTIONS (12)
  - Uterine cancer [Unknown]
  - Irritable bowel syndrome [Unknown]
  - Cough [Unknown]
  - Condition aggravated [Unknown]
  - Dyspepsia [Unknown]
  - Menopause [Unknown]
  - Anxiety [Unknown]
  - Abdominal distension [Unknown]
  - Headache [Unknown]
  - Diarrhoea [Unknown]
  - Malaise [Unknown]
  - Drug dose omission [Unknown]
